FAERS Safety Report 20486495 (Version 1)
Quarter: 2022Q1

REPORT INFORMATION
  Report Type: Spontaneous
  Country: US (occurrence: US)
  Receive Date: 20220217
  Receipt Date: 20220217
  Transmission Date: 20220423
  Serious: Yes (Other)
  Sender: FDA-Public Use
  Company Number: US-GLAXOSMITHKLINE-US2022GSK025537

PATIENT

DRUGS (14)
  1. ZANTAC [Suspect]
     Active Substance: RANITIDINE HYDROCHLORIDE
     Indication: Gastrooesophageal reflux disease
     Dosage: 25 MG, BID
     Route: 065
     Dates: start: 201301, end: 202012
  2. ZANTAC [Suspect]
     Active Substance: RANITIDINE HYDROCHLORIDE
     Indication: Hernia
  3. ZANTAC [Suspect]
     Active Substance: RANITIDINE HYDROCHLORIDE
     Indication: Gastrooesophageal reflux disease
     Dosage: 25 MG, BID
     Route: 065
     Dates: start: 201301, end: 202012
  4. ZANTAC [Suspect]
     Active Substance: RANITIDINE HYDROCHLORIDE
     Indication: Hernia
  5. ZANTAC [Suspect]
     Active Substance: RANITIDINE HYDROCHLORIDE
     Indication: Gastrooesophageal reflux disease
     Dosage: 25 MG, BID
     Route: 065
     Dates: start: 201301, end: 202012
  6. ZANTAC [Suspect]
     Active Substance: RANITIDINE HYDROCHLORIDE
     Indication: Hernia
  7. RANITIDINE [Suspect]
     Active Substance: RANITIDINE
     Indication: Gastrooesophageal reflux disease
     Dosage: 25 MG, BID
     Route: 065
     Dates: start: 201301, end: 202012
  8. RANITIDINE [Suspect]
     Active Substance: RANITIDINE
     Indication: Hernia
  9. RANITIDINE [Suspect]
     Active Substance: RANITIDINE
     Indication: Gastrooesophageal reflux disease
     Dosage: 25 MG, BID
     Route: 065
     Dates: start: 201301, end: 202012
  10. RANITIDINE [Suspect]
     Active Substance: RANITIDINE
     Indication: Hernia
  11. RANITIDINE [Suspect]
     Active Substance: RANITIDINE
     Indication: Gastrooesophageal reflux disease
     Dosage: 25 MG, BID
     Route: 065
     Dates: start: 201301, end: 202012
  12. RANITIDINE [Suspect]
     Active Substance: RANITIDINE
     Indication: Hernia
  13. RANITIDINE [Suspect]
     Active Substance: RANITIDINE
     Indication: Gastrooesophageal reflux disease
     Dosage: 25 MG, BID
     Route: 065
     Dates: start: 201301, end: 202012
  14. RANITIDINE [Suspect]
     Active Substance: RANITIDINE
     Indication: Hernia

REACTIONS (1)
  - Breast cancer [Unknown]
